FAERS Safety Report 25605561 (Version 1)
Quarter: 2025Q3

REPORT INFORMATION
  Report Type: Spontaneous
  Country: US (occurrence: None)
  Receive Date: 20250724
  Receipt Date: 20250724
  Transmission Date: 20251021
  Serious: Yes (Hospitalization)
  Sender: FDA-CTU
  Company Number: None

PATIENT
  Age: 67 Year
  Sex: Female

DRUGS (1)
  1. LENALIDOMIDE [Suspect]
     Active Substance: LENALIDOMIDE
     Dosage: FREQUENCY : DAILY;?

REACTIONS (8)
  - White blood cell count decreased [None]
  - Illness [None]
  - Malaise [None]
  - Infection [None]
  - Chest discomfort [None]
  - Pain [None]
  - Fatigue [None]
  - Gait disturbance [None]
